FAERS Safety Report 11286655 (Version 1)
Quarter: 2015Q2

REPORT INFORMATION
  Report Type: Spontaneous
  Country: US (occurrence: None)
  Receive Date: 20150623
  Receipt Date: 20150623
  Transmission Date: 20150821
  Serious: Yes (Other)
  Sender: FDA-Public Use
  Company Number: RB-66129-2014

PATIENT
  Sex: Female

DRUGS (2)
  1. MUCINEX DM [Suspect]
     Active Substance: DEXTROMETHORPHAN HYDROBROMIDE\GUAIFENESIN
     Indication: RESPIRATORY TRACT CONGESTION
     Dosage: TOOK 1 PILL
     Route: 048
     Dates: start: 20140311
  2. MUCINEX DM [Suspect]
     Active Substance: DEXTROMETHORPHAN HYDROBROMIDE\GUAIFENESIN
     Indication: COUGH
     Dosage: TOOK 1 PILL
     Route: 048
     Dates: start: 20140311

REACTIONS (12)
  - Loss of consciousness [None]
  - Facial bones fracture [None]
  - Nasal septum deviation [None]
  - Swelling [None]
  - Presyncope [None]
  - Dizziness [None]
  - Palpitations [None]
  - Dyspnoea [None]
  - Wound [None]
  - Scar [None]
  - Fall [None]
  - Haemorrhage [None]
